FAERS Safety Report 18458775 (Version 2)
Quarter: 2020Q4

REPORT INFORMATION
  Report Type: Spontaneous
  Country: GR (occurrence: GR)
  Receive Date: 20201103
  Receipt Date: 20201109
  Transmission Date: 20210114
  Serious: Yes (Hospitalization, Other)
  Sender: FDA-Public Use
  Company Number: GR-B.I. PHARMACEUTICALS,INC./RIDGEFIELD-2020-BI-057634

PATIENT
  Age: 68 Year
  Sex: Female

DRUGS (1)
  1. PRADAXA [Suspect]
     Active Substance: DABIGATRAN ETEXILATE MESYLATE
     Indication: ATRIAL FIBRILLATION
     Route: 048

REACTIONS (3)
  - Gastric haemorrhage [Recovered/Resolved]
  - Haematemesis [Recovered/Resolved]
  - Gastric ulcer [Not Recovered/Not Resolved]

NARRATIVE: CASE EVENT DATE: 20201014
